FAERS Safety Report 25321048 (Version 1)
Quarter: 2025Q2

REPORT INFORMATION
  Report Type: Spontaneous
  Country: US (occurrence: US)
  Receive Date: 20250515
  Receipt Date: 20250515
  Transmission Date: 20250716
  Serious: No
  Sender: SANOFI AVENTIS
  Company Number: US-SANOFI-02521577

PATIENT
  Age: 37 Year
  Sex: Female

DRUGS (2)
  1. DUPIXENT [Suspect]
     Active Substance: DUPILUMAB
     Indication: Asthma
     Dates: start: 2021, end: 2023
  2. DUPIXENT [Suspect]
     Active Substance: DUPILUMAB
     Dates: start: 202503

REACTIONS (1)
  - Eosinophil count increased [Unknown]
